FAERS Safety Report 14232881 (Version 1)
Quarter: 2017Q4

REPORT INFORMATION
  Report Type: Spontaneous
  Country: US (occurrence: US)
  Receive Date: 20171128
  Receipt Date: 20171128
  Transmission Date: 20180321
  Serious: No
  Sender: FDA-Public Use
  Company Number: US-JNJFOC-20170930698

PATIENT
  Age: 69 Year
  Sex: Female
  Weight: 68.04 kg

DRUGS (13)
  1. OMEGA-3 FATTY ACIDS [Concomitant]
     Active Substance: OMEGA-3 FATTY ACIDS
     Indication: BLOOD CHOLESTEROL INCREASED
     Dosage: 11 YEARS
     Route: 065
  2. BABY ASPIRIN [Concomitant]
     Active Substance: ASPIRIN
     Indication: CARDIAC DISORDER
     Route: 065
  3. HEAD AND SHOULDERS [Concomitant]
     Active Substance: PYRITHIONE ZINC
     Indication: DANDRUFF
     Route: 061
  4. EVOLOCUMAB [Concomitant]
     Active Substance: EVOLOCUMAB
     Indication: BLOOD CHOLESTEROL INCREASED
     Dosage: 1 -2 YEARS
     Route: 065
  5. SUMATRIPTAN. [Concomitant]
     Active Substance: SUMATRIPTAN
     Indication: MIGRAINE
     Dosage: 1 X A DAY PRN
     Route: 065
  6. HYDROCODONE [Concomitant]
     Active Substance: HYDROCODONE
     Indication: PAIN MANAGEMENT
     Dosage: 10/325 MG, 10 YEARS
     Route: 065
  7. WOMENS ROGAINE UNSCENTED [Suspect]
     Active Substance: MINOXIDIL
     Indication: ALOPECIA
     Dosage: 1/2 CAPFUL
     Route: 061
     Dates: start: 201705
  8. OMEPRAZOLE. [Concomitant]
     Active Substance: OMEPRAZOLE
     Indication: DYSPEPSIA
     Dosage: 39 YEARS
     Route: 065
  9. FERROUS SULFATE. [Concomitant]
     Active Substance: FERROUS SULFATE
     Indication: ANAEMIA
     Route: 065
  10. PROMETHAZINE [Concomitant]
     Active Substance: PROMETHAZINE\PROMETHAZINE HYDROCHLORIDE
     Indication: NAUSEA
     Route: 065
  11. WOMENS ROGAINE UNSCENTED [Suspect]
     Active Substance: MINOXIDIL
     Indication: ALOPECIA
     Dosage: 1/2 CAPFUL
     Route: 061
     Dates: end: 201709
  12. LEXAPRO [Concomitant]
     Active Substance: ESCITALOPRAM OXALATE
     Indication: DEPRESSION
     Dosage: 2 MONTHS
     Route: 065
  13. VITAMIN E [Concomitant]
     Active Substance: .ALPHA.-TOCOPHEROL
     Indication: FIBROCYSTIC BREAST DISEASE
     Dosage: 800-1000 MG
     Route: 065

REACTIONS (3)
  - Rash [Recovering/Resolving]
  - Erythema [Recovering/Resolving]
  - Contraindicated product administered [Recovering/Resolving]

NARRATIVE: CASE EVENT DATE: 201705
